FAERS Safety Report 5847194-9 (Version None)
Quarter: 2008Q3

REPORT INFORMATION
  Report Type: 
  Country: None (occurrence: None)
  Receive Date: 20080815
  Receipt Date: 20080808
  Transmission Date: 20090109
  Serious: Yes (Other)
  Sender: FDA-Public Use
  Company Number: PHHY2008JP16365

PATIENT
  Age: 57 Year
  Sex: Female

DRUGS (11)
  1. AREDIA [Suspect]
     Dosage: 45 MG, QMO
     Route: 042
     Dates: start: 20040101, end: 20041201
  2. AREDIA [Suspect]
     Dosage: 90 MG, QMO
     Route: 042
     Dates: start: 20050101, end: 20060501
  3. ZOMETA [Suspect]
     Dosage: 4 MG, QMO
     Route: 042
     Dates: start: 20060601, end: 20070501
  4. FARMORUBICIN [Concomitant]
     Dosage: UNK
     Dates: start: 20031201, end: 20040601
  5. ENDOXAN [Concomitant]
     Dosage: UNK
     Dates: start: 20031201, end: 20040601
  6. ARIMIDEX [Concomitant]
  7. TAXOTERE [Concomitant]
  8. XELODA [Concomitant]
  9. TS 1 [Concomitant]
  10. GAMMA IRRADIATION [Concomitant]
     Indication: METASTASES TO CENTRAL NERVOUS SYSTEM
     Dosage: UNK
     Dates: start: 20050101, end: 20060501
  11. RADIATION THERAPY [Concomitant]
     Indication: METASTASES TO BONE
     Dosage: UNK
     Dates: start: 20070401

REACTIONS (15)
  - ABSCESS DRAINAGE [None]
  - BETA HAEMOLYTIC STREPTOCOCCAL INFECTION [None]
  - BLOOD ALKALINE PHOSPHATASE INCREASED [None]
  - BONE LESION [None]
  - GINGIVAL ABSCESS [None]
  - GINGIVAL SWELLING [None]
  - MOUTH ULCERATION [None]
  - ORAL SURGERY [None]
  - OSTEONECROSIS [None]
  - PAIN [None]
  - PERIODONTITIS [None]
  - RED BLOOD CELL COUNT DECREASED [None]
  - SWELLING [None]
  - TOOTH EXTRACTION [None]
  - WHITE BLOOD CELL COUNT DECREASED [None]
